FAERS Safety Report 5355565-2 (Version None)
Quarter: 2007Q2

REPORT INFORMATION
  Report Type: 
  Country: None (occurrence: None)
  Receive Date: 20070530
  Receipt Date: 20061023
  Transmission Date: 20071010
  Serious: Yes (Hospitalization)
  Sender: FDA-Public Use
  Company Number: US200609000970

PATIENT
  Age: 10 Year
  Sex: Female
  Weight: 64.4 kg

DRUGS (3)
  1. ZYPREXA [Suspect]
     Dates: start: 20000101
  2. RISPERIDONE [Concomitant]
  3. DIVALPROEX SODIUM [Concomitant]

REACTIONS (4)
  - BLOOD CHOLESTEROL ABNORMAL [None]
  - BLOOD TRIGLYCERIDES INCREASED [None]
  - COMA [None]
  - HYPERGLYCAEMIA [None]
